FAERS Safety Report 24846935 (Version 2)
Quarter: 2025Q1

REPORT INFORMATION
  Report Type: Spontaneous
  Country: DE (occurrence: DE)
  Receive Date: 20250115
  Receipt Date: 20250128
  Transmission Date: 20250408
  Serious: Yes (Other)
  Sender: JOHNSON AND JOHNSON
  Company Number: DE-BAYER-2025A004939

PATIENT
  Age: 85 Year
  Sex: Female

DRUGS (3)
  1. XARELTO [Suspect]
     Active Substance: RIVAROXABAN
     Indication: Atrial fibrillation
     Dosage: 15 MG, QD
     Route: 048
     Dates: start: 20241101
  2. XARELTO [Suspect]
     Active Substance: RIVAROXABAN
     Dosage: 7.5 MG, QD
  3. CRATAEGUS LAEVIGATA FLOWERING TOP [Concomitant]
     Active Substance: CRATAEGUS LAEVIGATA FLOWERING TOP
     Indication: Product used for unknown indication

REACTIONS (11)
  - Paraesthesia [Recovering/Resolving]
  - Erythema [Recovering/Resolving]
  - Musculoskeletal stiffness [Unknown]
  - Joint stiffness [Unknown]
  - Peripheral swelling [Not Recovered/Not Resolved]
  - Joint swelling [Unknown]
  - Sensitive skin [Unknown]
  - Burning sensation [Unknown]
  - Pain [Recovering/Resolving]
  - Bone swelling [Unknown]
  - Product prescribing issue [Unknown]

NARRATIVE: CASE EVENT DATE: 20241103
